FAERS Safety Report 18180782 (Version 1)
Quarter: 2020Q3

REPORT INFORMATION
  Report Type: Spontaneous
  Country: US (occurrence: US)
  Receive Date: 20200821
  Receipt Date: 20200821
  Transmission Date: 20201103
  Serious: Yes (Death, Other)
  Sender: FDA-Public Use
  Company Number: US-SA-2020SA219742

PATIENT

DRUGS (1)
  1. ZANTAC [Suspect]
     Active Substance: RANITIDINE HYDROCHLORIDE
     Dosage: UNK
     Dates: start: 199701, end: 201808

REACTIONS (3)
  - Throat cancer [Fatal]
  - Oesophageal carcinoma [Fatal]
  - Nasal cavity cancer [Fatal]

NARRATIVE: CASE EVENT DATE: 20171117
